FAERS Safety Report 12311259 (Version 1)
Quarter: 2016Q2

REPORT INFORMATION
  Report Type: Spontaneous
  Country: US (occurrence: US)
  Receive Date: 20160427
  Receipt Date: 20160427
  Transmission Date: 20160815
  Serious: Yes (Other)
  Sender: FDA-Public Use
  Company Number: US-LPDUSPRD-20160356

PATIENT
  Age: 57 Year
  Sex: Female

DRUGS (2)
  1. SODIUM BICARBONATE INJECTION, USP (0639-25) [Suspect]
     Active Substance: SODIUM BICARBONATE
     Dosage: DOSE NOT PROVIDED
     Route: 065
  2. EPINEPHRINE INJECTION, USP (1071-25) [Suspect]
     Active Substance: EPINEPHRINE
     Dosage: DOSE NOT PROVIDED
     Route: 065

REACTIONS (4)
  - PCO2 increased [None]
  - Ventricular tachycardia [Unknown]
  - Blood pH decreased [None]
  - Haemodialysis [None]
